FAERS Safety Report 20886881 (Version 1)
Quarter: 2022Q2

REPORT INFORMATION
  Report Type: Spontaneous
  Country: US (occurrence: US)
  Receive Date: 20220528
  Receipt Date: 20220528
  Transmission Date: 20220720
  Serious: Yes (Hospitalization, Other)
  Sender: FDA-Public Use
  Company Number: US-UNITED THERAPEUTICS-UNT-2022-010503

PATIENT
  Age: 78 Year
  Sex: Male
  Weight: 91.61 kg

DRUGS (2)
  1. TYVASO [Suspect]
     Active Substance: TREPROSTINIL
     Indication: Pulmonary arterial hypertension
     Dosage: UNK
     Dates: start: 20220401
  2. TYVASO [Suspect]
     Active Substance: TREPROSTINIL
     Dosage: 18-72 ?G, QID

REACTIONS (4)
  - Pneumonia [Unknown]
  - Rhinitis [Unknown]
  - Respiratory distress [Unknown]
  - Sinusitis [Unknown]

NARRATIVE: CASE EVENT DATE: 20220505
